FAERS Safety Report 9758323 (Version 2)
Quarter: 2013Q4

REPORT INFORMATION
  Report Type: Spontaneous
  Country: IT (occurrence: IT)
  Receive Date: 20131216
  Receipt Date: 20131224
  Transmission Date: 20140711
  Serious: No
  Sender: FDA-Public Use
  Company Number: IT-ROCHE-1318486

PATIENT
  Age: 58 Year
  Sex: Female

DRUGS (6)
  1. MIDAZOLAM ROCHE UNSPEC. [Suspect]
     Indication: SEDATION
     Route: 042
     Dates: start: 20131005, end: 20131005
  2. FLUMAZENIL [Suspect]
     Indication: SEDATION
     Route: 042
     Dates: start: 20131005, end: 20131005
  3. FENTANEST [Suspect]
     Indication: SEDATION
     Route: 065
     Dates: start: 20131005, end: 20131005
  4. LOBIVON [Concomitant]
  5. IGROTON [Concomitant]
  6. EUTIROX [Concomitant]

REACTIONS (3)
  - Anaemia [Recovering/Resolving]
  - Headache [Recovering/Resolving]
  - Vertigo [Recovering/Resolving]
